FAERS Safety Report 25485111 (Version 3)
Quarter: 2025Q4

REPORT INFORMATION
  Report Type: Spontaneous
  Country: EU (occurrence: EU)
  Receive Date: 20250626
  Receipt Date: 20251016
  Transmission Date: 20260117
  Serious: Yes (Hospitalization, Other)
  Sender: GLAXOSMITHKLINE
  Company Number: None

PATIENT
  Age: 74 Year
  Sex: Female

DRUGS (2)
  1. BUPROPION [Suspect]
     Active Substance: BUPROPION
     Indication: Product used for unknown indication
     Dosage: 4500 MG
  2. ACETAMINOPHEN\TRAMADOL [Suspect]
     Active Substance: ACETAMINOPHEN\TRAMADOL
     Indication: Product used for unknown indication
     Dosage: UNK (TOTAL DOSE: 750/6500 MG)
     Route: 065

REACTIONS (8)
  - Serotonin syndrome [Recovered/Resolved]
  - Psychomotor retardation [Recovered/Resolved]
  - Disorientation [Recovered/Resolved]
  - Opsoclonus [Recovered/Resolved]
  - Clonus [Recovered/Resolved]
  - Hyperreflexia [Recovered/Resolved]
  - Nystagmus [Recovered/Resolved]
  - Intentional overdose [Unknown]
